FAERS Safety Report 5221107-5 (Version None)
Quarter: 2007Q1

REPORT INFORMATION
  Report Type: 
  Country: None (occurrence: None)
  Receive Date: 20070126
  Receipt Date: 20060124
  Transmission Date: 20070707
  Serious: No
  Sender: FDA-Public Use
  Company Number: US-BRISTOL-MYERS SQUIBB COMPANY-13135041

PATIENT
  Age: 16 Month
  Sex: Male

DRUGS (4)
  1. CEFZIL [Suspect]
     Indication: URINARY TRACT INFECTION
     Route: 048
     Dates: start: 20050910, end: 20050920
  2. CEFZIL [Suspect]
     Route: 048
     Dates: start: 20050930, end: 20051003
  3. LURIDE [Concomitant]
  4. OXYBUTYNIN [Concomitant]

REACTIONS (1)
  - URINARY TRACT INFECTION [None]
